FAERS Safety Report 8152174-7 (Version None)
Quarter: 2012Q1

REPORT INFORMATION
  Report Type: 
  Country: None (occurrence: None)
  Receive Date: 20120221
  Receipt Date: 20120215
  Transmission Date: 20120608
  Serious: Yes (Hospitalization)
  Sender: FDA-Public Use
  Company Number: GB-PFIZER INC-2011217070

PATIENT
  Sex: Male

DRUGS (1)
  1. SUNITINIB MALATE [Suspect]
     Indication: BLADDER TRANSITIONAL CELL CARCINOMA STAGE IV
     Dosage: UNK
     Dates: start: 20110615

REACTIONS (1)
  - SYNCOPE [None]
